FAERS Safety Report 8975166 (Version 2)
Quarter: 2013Q2

REPORT INFORMATION
  Report Type: Spontaneous
  Country: US (occurrence: US)
  Receive Date: 20121219
  Receipt Date: 20130606
  Transmission Date: 20140414
  Serious: No
  Sender: FDA-Public Use
  Company Number: US-AMGEN-USASP2012073147

PATIENT
  Age: 71 Year
  Sex: Female
  Weight: 80.27 kg

DRUGS (2)
  1. PROLIA [Suspect]
     Indication: OSTEOPOROSIS POSTMENOPAUSAL
     Dosage: 60 MG, Q6MO
     Route: 058
     Dates: start: 20121010
  2. PREDNISONE [Concomitant]
     Dosage: UNK

REACTIONS (7)
  - Ear pain [Unknown]
  - Neck pain [Recovering/Resolving]
  - Headache [Recovering/Resolving]
  - Feeling cold [Unknown]
  - Spinal column stenosis [Not Recovered/Not Resolved]
  - Bone pain [Unknown]
  - Arthralgia [Unknown]
